FAERS Safety Report 8413654-X (Version None)
Quarter: 2012Q2

REPORT INFORMATION
  Report Type: 
  Country: None (occurrence: None)
  Receive Date: 20120605
  Receipt Date: 20120604
  Transmission Date: 20120825
  Serious: Yes (Other)
  Sender: FDA-Public Use
  Company Number: ES-PFIZER INC-2012100634

PATIENT
  Age: 66 Year
  Sex: Male

DRUGS (1)
  1. ATORVASTATIN [Suspect]
     Indication: MYOCARDIAL INFARCTION
     Dosage: 40 MG, ONCE DAILY
     Route: 048
     Dates: start: 20040101, end: 20110101

REACTIONS (3)
  - CHRONIC OBSTRUCTIVE PULMONARY DISEASE [None]
  - PULMONARY FIBROSIS [None]
  - BLISTER [None]
